FAERS Safety Report 21121391 (Version 2)
Quarter: 2022Q3

REPORT INFORMATION
  Report Type: Spontaneous
  Country: US (occurrence: None)
  Receive Date: 20220722
  Receipt Date: 20220907
  Transmission Date: 20221027
  Serious: Yes (Other)
  Sender: FDA-Public Use
  Company Number: 2022A258413

PATIENT
  Age: 685 Month
  Sex: Female

DRUGS (1)
  1. FASENRA [Suspect]
     Active Substance: BENRALIZUMAB
     Indication: Asthma
     Route: 058
     Dates: start: 20220512

REACTIONS (5)
  - Fall [Unknown]
  - Concussion [Unknown]
  - Wrist fracture [Unknown]
  - Upper limb fracture [Unknown]
  - Asthma [Unknown]

NARRATIVE: CASE EVENT DATE: 20220601
